FAERS Safety Report 7526456-3 (Version None)
Quarter: 2011Q2

REPORT INFORMATION
  Report Type: 
  Country: None (occurrence: None)
  Receive Date: 20110606
  Receipt Date: 20110529
  Transmission Date: 20111010
  Serious: Yes (Other)
  Sender: FDA-Public Use
  Company Number: US-ABBOTT-11P-163-0722978-00

PATIENT
  Sex: Female

DRUGS (8)
  1. HUMIRA [Suspect]
     Indication: RHEUMATOID ARTHRITIS
     Dates: start: 20100101, end: 20100801
  2. NEXIUM [Concomitant]
     Indication: GASTROENTERITIS
  3. SOMA [Concomitant]
     Indication: BACK DISORDER
  4. RELAFEN [Concomitant]
     Indication: BACK DISORDER
  5. HUMIRA [Suspect]
     Dates: start: 20110301
  6. NORCO [Concomitant]
     Indication: BACK PAIN
  7. NORCO [Concomitant]
     Indication: ARTHRALGIA
  8. XANAX [Concomitant]
     Indication: BACK DISORDER

REACTIONS (15)
  - HEADACHE [None]
  - FEELING HOT [None]
  - AMENORRHOEA [None]
  - DEFORMITY [None]
  - RHEUMATOID ARTHRITIS [None]
  - HYPOAESTHESIA FACIAL [None]
  - ASTHENIA [None]
  - INTERVERTEBRAL DISC PROTRUSION [None]
  - DYSMENORRHOEA [None]
  - HYPERHIDROSIS [None]
  - ACCIDENT [None]
  - NAUSEA [None]
  - DISTURBANCE IN ATTENTION [None]
  - VOMITING [None]
  - FLUSHING [None]
